FAERS Safety Report 21212537 (Version 4)
Quarter: 2022Q4

REPORT INFORMATION
  Report Type: Other
  Country: JP (occurrence: JP)
  Receive Date: 20220815
  Receipt Date: 20221006
  Transmission Date: 20230112
  Serious: Yes (Hospitalization, Other)
  Sender: FDA-Public Use
  Company Number: JP-CHUGAI-2022027121

PATIENT
  Age: 59 Year
  Sex: Male
  Weight: 53.5 kg

DRUGS (4)
  1. ATEZOLIZUMAB [Suspect]
     Active Substance: ATEZOLIZUMAB
     Indication: Lung adenocarcinoma
     Dosage: 1200 MILLIGRAM, MOST RECENT DOSE RECEIVED ON 20/APR/2022
     Route: 041
     Dates: start: 20211110
  2. BEVACIZUMAB [Suspect]
     Active Substance: BEVACIZUMAB
     Indication: Lung adenocarcinoma
     Dosage: 800 MILLIGRAM
     Route: 041
     Dates: start: 20211110, end: 20220218
  3. CARBOPLATIN [Suspect]
     Active Substance: CARBOPLATIN
     Indication: Lung adenocarcinoma
     Dosage: 479 MILLIGRAM, MOST RECENT DOSE ADMINISTERED ON 28/JAN/2022
     Route: 041
     Dates: start: 20211110
  4. PACLITAXEL [Suspect]
     Active Substance: PACLITAXEL
     Indication: Lung adenocarcinoma
     Dosage: 277 MILLIGRAM, MOST RECENT DOSE ADMINISTERED ON 28/JAN/2022
     Route: 041
     Dates: start: 20211110

REACTIONS (7)
  - Pneumatosis intestinalis [Recovering/Resolving]
  - Neutrophil count decreased [Recovered/Resolved]
  - Abdominal discomfort [Not Recovered/Not Resolved]
  - Dermatitis contact [Not Recovered/Not Resolved]
  - Blood pressure increased [Not Recovered/Not Resolved]
  - Arthralgia [Not Recovered/Not Resolved]
  - Neuropathy peripheral [Not Recovered/Not Resolved]

NARRATIVE: CASE EVENT DATE: 20211114
